FAERS Safety Report 18419055 (Version 1)
Quarter: 2020Q4

REPORT INFORMATION
  Report Type: Spontaneous
  Country: US (occurrence: US)
  Receive Date: 20201023
  Receipt Date: 20201023
  Transmission Date: 20210114
  Serious: No
  Sender: FDA-Public Use
  Company Number: None

PATIENT
  Sex: Female

DRUGS (1)
  1. DOXY 150MG [Suspect]
     Active Substance: DOXYCYCLINE
     Indication: ACNE
     Dates: start: 2015

REACTIONS (2)
  - Pruritus [None]
  - Rash [None]
